FAERS Safety Report 18762146 (Version 6)
Quarter: 2021Q4

REPORT INFORMATION
  Report Type: Spontaneous
  Country: UA (occurrence: UA)
  Receive Date: 20210120
  Receipt Date: 20211014
  Transmission Date: 20220303
  Serious: Yes (Death, Hospitalization, Other)
  Sender: FDA-Public Use
  Company Number: UA-CELGENE-UKR-20210103942

PATIENT
  Age: 72 Year
  Sex: Male
  Weight: 65 kg

DRUGS (3)
  1. ABRAXANE [Suspect]
     Active Substance: PACLITAXEL
     Indication: Non-small cell lung cancer
     Dosage: 175 MILLIGRAM
     Route: 041
     Dates: start: 20201124, end: 20201124
  2. CARBOPLATIN [Suspect]
     Active Substance: CARBOPLATIN
     Indication: Non-small cell lung cancer
     Dosage: 548.2 MILLIGRAM
     Route: 041
     Dates: start: 20201124, end: 20201124
  3. SERPLULIMAB [Suspect]
     Active Substance: SERPLULIMAB
     Indication: Non-small cell lung cancer
     Dosage: 292.5 MILLIGRAM
     Route: 041
     Dates: start: 20201124, end: 20201124

REACTIONS (4)
  - Hepatic failure [Fatal]
  - Renal failure [Fatal]
  - Ascites [Not Recovered/Not Resolved]
  - Thrombocytopenia [Not Recovered/Not Resolved]

NARRATIVE: CASE EVENT DATE: 20201207
